APPROVED DRUG PRODUCT: TOPAMAX SPRINKLE
Active Ingredient: TOPIRAMATE
Strength: 50MG **Federal Register determination that product was not discontinued or withdrawn for safety or effectiveness reasons**
Dosage Form/Route: CAPSULE;ORAL
Application: N020844 | Product #003
Applicant: JANSSEN PHARMACEUTICALS INC
Approved: Oct 26, 1998 | RLD: Yes | RS: No | Type: DISCN